FAERS Safety Report 5164403-2 (Version None)
Quarter: 2006Q4

REPORT INFORMATION
  Report Type: 
  Country: None (occurrence: None)
  Receive Date: 20061205
  Receipt Date: 20061124
  Transmission Date: 20070319
  Serious: Yes (Hospitalization)
  Sender: FDA-Public Use
  Company Number: FR-JNJFOC-20061105590

PATIENT
  Age: 59 Year
  Sex: Male

DRUGS (2)
  1. REMICADE [Suspect]
     Indication: CROHN'S DISEASE
     Dosage: 1ST INF UNKNOWN DATE  LAST INFUSION- 30-SEP-2006
     Route: 042
  2. CORTICOTHERAPY [Concomitant]
     Route: 065

REACTIONS (1)
  - COLITIS [None]
